FAERS Safety Report 14636842 (Version 5)
Quarter: 2018Q2

REPORT INFORMATION
  Report Type: Spontaneous
  Country: TW (occurrence: TW)
  Receive Date: 20180314
  Receipt Date: 20180622
  Transmission Date: 20180711
  Serious: Yes (Hospitalization, Other)
  Sender: FDA-Public Use
  Company Number: TW-PFIZER INC-2018022841

PATIENT
  Age: 48 Year
  Sex: Male

DRUGS (2)
  1. SUTENT [Suspect]
     Active Substance: SUNITINIB MALATE
     Indication: RENAL CELL CARCINOMA
     Dosage: 50 MG, CYCLIC (ONCE DAILY, THREE WEEKS ON AND ONE WEEK OFF)
     Route: 048
     Dates: start: 20180101, end: 2018
  2. SUTENT [Suspect]
     Active Substance: SUNITINIB MALATE
     Dosage: 37.5 MG, CYCLIC (ONCE DAILY, THREE WEEKS ON AND ONE WEEK OFF)
     Route: 048
     Dates: start: 20180225, end: 20180410

REACTIONS (10)
  - Haematochezia [Recovered/Resolved]
  - Dizziness [Recovering/Resolving]
  - Decreased appetite [Recovering/Resolving]
  - Rash [Not Recovered/Not Resolved]
  - Dry mouth [Unknown]
  - Dysgeusia [Unknown]
  - Ecchymosis [Not Recovered/Not Resolved]
  - Diarrhoea [Recovered/Resolved]
  - Palmar-plantar erythrodysaesthesia syndrome [Unknown]
  - Gastric ulcer haemorrhage [Unknown]

NARRATIVE: CASE EVENT DATE: 201801
